FAERS Safety Report 9068865 (Version 2)
Quarter: 2013Q1

REPORT INFORMATION
  Report Type: Spontaneous
  Country: GB (occurrence: GB)
  Receive Date: 20130215
  Receipt Date: 20130301
  Transmission Date: 20140127
  Serious: Yes (Disabling)
  Sender: FDA-Public Use
  Company Number: GB-PFIZER INC-2013058834

PATIENT
  Age: 66 Year
  Sex: Male
  Weight: 85 kg

DRUGS (4)
  1. VIAGRA [Suspect]
     Indication: ERECTILE DYSFUNCTION
     Dosage: 50 MG, AS NEEDED
  2. CARBAMAZEPINE [Concomitant]
     Dosage: 400 MG, 2X/DAY
  3. FINASTERIDE [Concomitant]
     Dosage: 5 MG, 1X/DAY
  4. TAMSULOSIN [Concomitant]
     Dosage: 400 UG, 1X/DAY

REACTIONS (3)
  - Retinal vein occlusion [Unknown]
  - Retinal haemorrhage [Not Recovered/Not Resolved]
  - Retinal vein thrombosis [Not Recovered/Not Resolved]
